FAERS Safety Report 8862414 (Version 1)
Quarter: 2012Q4

REPORT INFORMATION
  Report Type: 
  Country: US (occurrence: US)
  Receive Date: 20121026
  Receipt Date: 20121026
  Transmission Date: 20130627
  Serious: Yes (Other)
  Sender: FDA-Public Use
  Company Number: PHEH2012US020871

PATIENT
  Sex: Female

DRUGS (2)
  1. COMBIPATCH [Suspect]
     Route: 062
  2. ANTIDEPRESSANTS [Concomitant]

REACTIONS (6)
  - Diabetes mellitus [Unknown]
  - Benign breast neoplasm [Unknown]
  - Osteoarthritis [Unknown]
  - Fibromyalgia [Unknown]
  - Blood cholesterol increased [Unknown]
  - Hyperhidrosis [Unknown]
